FAERS Safety Report 6415756-6 (Version None)
Quarter: 2009Q4

REPORT INFORMATION
  Report Type: 
  Country: None (occurrence: None)
  Receive Date: 20091022
  Receipt Date: 20091007
  Transmission Date: 20100525
  Serious: Yes (Other)
  Sender: FDA-Public Use
  Company Number: AUR-APL-2009-00877

PATIENT
  Sex: Female

DRUGS (6)
  1. AMLODIPINE [Suspect]
     Dosage: 5MG - DAILY - UNK
  2. LISINOPRIL [Suspect]
     Dosage: UNK - UNK - UNK
  3. NIFEDIPINE [Suspect]
     Dosage: UNK - UNK - UNK
  4. LOPRESSOR [Suspect]
     Dosage: UNK - UNK - UNK
  5. COMBIVENT [Suspect]
     Dosage: UNK - UNK - UNK
  6. VITAMINS [Suspect]
     Dosage: UNK - UNK - UNK

REACTIONS (7)
  - ABDOMINAL DISTENSION [None]
  - BLOOD PRESSURE INCREASED [None]
  - DRUG INEFFECTIVE [None]
  - HERPES ZOSTER [None]
  - JOINT SWELLING [None]
  - OEDEMA PERIPHERAL [None]
  - WEIGHT INCREASED [None]
